FAERS Safety Report 19179947 (Version 2)
Quarter: 2021Q2

REPORT INFORMATION
  Report Type: Spontaneous
  Country: US (occurrence: US)
  Receive Date: 20210426
  Receipt Date: 20210428
  Transmission Date: 20210717
  Serious: No
  Sender: FDA-Public Use
  Company Number: US-ORGANON-O2104USA001916

PATIENT
  Sex: Female

DRUGS (1)
  1. ASMANEX [Suspect]
     Active Substance: MOMETASONE FUROATE
     Indication: ASTHMA
     Dosage: 1 PUFF, DAILY
     Dates: start: 2010

REACTIONS (6)
  - Malaise [Unknown]
  - Influenza like illness [Unknown]
  - Asthenia [Unknown]
  - Tremor [Unknown]
  - Fatigue [Unknown]
  - Weight decreased [Unknown]
